FAERS Safety Report 17676777 (Version 1)
Quarter: 2020Q2

REPORT INFORMATION
  Report Type: Spontaneous
  Country: US (occurrence: US)
  Receive Date: 20200416
  Receipt Date: 20200416
  Transmission Date: 20200714
  Serious: Yes (Other)
  Sender: FDA-Public Use
  Company Number: US-PRINSTON PHARMACEUTICAL INC.-2020PRN00121

PATIENT
  Sex: Female
  Weight: 51.7 kg

DRUGS (4)
  1. LISINOPRIL. [Suspect]
     Active Substance: LISINOPRIL
     Indication: HYPERTENSION
     Dosage: 5 MG, 1X/DAY WITH BREAKFAST
     Route: 048
     Dates: start: 201904
  2. LISINOPRIL. [Suspect]
     Active Substance: LISINOPRIL
     Indication: DEPRESSION
  3. LISINOPRIL. [Suspect]
     Active Substance: LISINOPRIL
     Indication: ANXIETY
     Dosage: 5 MG, 1X/DAY WITH BREAKFAST
     Route: 048
     Dates: end: 202001
  4. CYMBALTA [Suspect]
     Active Substance: DULOXETINE HYDROCHLORIDE
     Dosage: UNK
     Dates: end: 202001

REACTIONS (8)
  - Product substitution issue [Recovered/Resolved]
  - Paraesthesia [Recovered/Resolved]
  - Plastic surgery [Unknown]
  - Erythema nodosum [Recovering/Resolving]
  - Discomfort [Recovered/Resolved]
  - Crying [Recovered/Resolved]
  - Gait inability [Recovered/Resolved]
  - Decreased activity [Recovered/Resolved]
